FAERS Safety Report 4560842-9 (Version None)
Quarter: 2005Q1

REPORT INFORMATION
  Report Type: 
  Country: None (occurrence: None)
  Receive Date: 20050121
  Receipt Date: 20050113
  Transmission Date: 20050727
  Serious: Yes (Life-Threatening, Hospitalization)
  Sender: FDA-Public Use
  Company Number: 2005-00158

PATIENT
  Age: 26 Year
  Sex: Female

DRUGS (2)
  1. BREVICON UNKNOWN (WATSON LABORATORIES) (NORETHINDRONE, ETHINYL ESTRADI [Suspect]
     Indication: ACNE
     Dosage: ORAL
     Route: 048
  2. BREVICON UNKNOWN (WATSON LABORATORIES) (NORETHINDRONE, ETHINYL ESTRADI [Suspect]
     Indication: HIRSUTISM
     Dosage: ORAL
     Route: 048

REACTIONS (2)
  - MALIGNANT HYPERTENSION [None]
  - RENAL FAILURE ACUTE [None]
